FAERS Safety Report 7991252-X (Version None)
Quarter: 2011Q4

REPORT INFORMATION
  Report Type: 
  Country: None (occurrence: None)
  Receive Date: 20111219
  Receipt Date: 20111215
  Transmission Date: 20120403
  Serious: Yes (Other)
  Sender: FDA-Public Use
  Company Number: FR-GLAXOSMITHKLINE-B0769754A

PATIENT
  Age: 73 Year
  Sex: Female

DRUGS (2)
  1. PAROXETINE HCL [Suspect]
     Indication: ANXIETY
     Route: 048
     Dates: start: 20110920, end: 20111201
  2. SERC [Concomitant]
     Indication: DIZZINESS
     Route: 065

REACTIONS (5)
  - MEMORY IMPAIRMENT [None]
  - DISTURBANCE IN ATTENTION [None]
  - HEADACHE [None]
  - HALLUCINATION [None]
  - MYOCLONUS [None]
